FAERS Safety Report 7415164-5 (Version None)
Quarter: 2011Q2

REPORT INFORMATION
  Report Type: 
  Country: None (occurrence: None)
  Receive Date: 20110414
  Receipt Date: 20110405
  Transmission Date: 20111010
  Serious: Yes (Other)
  Sender: FDA-Public Use
  Company Number: PHHY2011FR29172

PATIENT
  Sex: Male

DRUGS (1)
  1. RASILEZ [Suspect]
     Indication: HYPERTENSION
     Dosage: 1 DF, QD
     Dates: start: 20100101

REACTIONS (4)
  - GASTROENTERITIS [None]
  - RENAL FAILURE ACUTE [None]
  - WEIGHT DECREASED [None]
  - DEHYDRATION [None]
